FAERS Safety Report 7110462-7 (Version None)
Quarter: 2010Q4

REPORT INFORMATION
  Report Type: 
  Country: None (occurrence: None)
  Receive Date: 20101118
  Receipt Date: 20101111
  Transmission Date: 20110411
  Serious: Yes (Death, Hospitalization)
  Sender: FDA-Public Use
  Company Number: US-CELGENEUS-163-21880-10082001

PATIENT
  Sex: Male

DRUGS (16)
  1. REVLIMID [Suspect]
     Route: 048
     Dates: start: 20090701
  2. REVLIMID [Suspect]
     Route: 048
     Dates: start: 20090901, end: 20101001
  3. ASPIRIN [Concomitant]
     Route: 065
  4. REMERON [Concomitant]
     Indication: DEPRESSION
     Route: 065
  5. PROSCAR [Concomitant]
     Route: 065
  6. DOXAZOSIN MESYLATE [Concomitant]
     Route: 065
  7. LOPRESSOR [Concomitant]
     Indication: CARDIAC DISORDER
     Route: 065
     Dates: start: 20091101
  8. NEUPOGEN [Concomitant]
     Dosage: 300
     Route: 058
     Dates: start: 20080229
  9. ARANESP [Concomitant]
     Route: 065
     Dates: start: 20080201
  10. FENTANYL [Concomitant]
     Indication: PAIN
     Route: 062
  11. LASIX [Concomitant]
     Indication: PAIN
     Route: 065
  12. PROCHLORPERAZINE [Concomitant]
     Indication: NAUSEA
     Route: 065
  13. LOMOTIL [Concomitant]
     Route: 065
  14. HYDROCODONE BITARTRATE + ACETAMINOPHEN [Concomitant]
     Dosage: 7.5/750
     Route: 065
  15. PEPCID [Concomitant]
     Route: 065
  16. LEXAPRO [Concomitant]
     Indication: DEPRESSION
     Route: 065

REACTIONS (3)
  - ATRIAL FIBRILLATION [None]
  - CARDIAC FAILURE CONGESTIVE [None]
  - URINARY TRACT INFECTION [None]
